FAERS Safety Report 8055193-4 (Version None)
Quarter: 2012Q1

REPORT INFORMATION
  Report Type: 
  Country: None (occurrence: None)
  Receive Date: 20120119
  Receipt Date: 20120117
  Transmission Date: 20120608
  Serious: Yes (Death, Other)
  Sender: FDA-Public Use
  Company Number: PHHY2012FR002930

PATIENT
  Age: 40 Year
  Sex: Male

DRUGS (6)
  1. HALDOL [Concomitant]
  2. CLOZAPINE [Suspect]
     Dosage: 100 MG MORNING
     Dates: start: 20051219
  3. SOLIAN [Concomitant]
  4. CLOZAPINE [Suspect]
     Indication: AGITATION
     Dosage: 400 TO 500 MG/DAY FOR 3 DAYS
     Route: 048
     Dates: start: 20051216
  5. MEPROBAMATE [Concomitant]
  6. ZYPREXA [Concomitant]

REACTIONS (8)
  - INTERSTITIAL LUNG DISEASE [None]
  - DYSPHAGIA [None]
  - RESPIRATORY DISTRESS [None]
  - DEATH [None]
  - PYREXIA [None]
  - BRADYCARDIA [None]
  - AMYLASE ABNORMAL [None]
  - HYPOXIA [None]
